FAERS Safety Report 17045637 (Version 1)
Quarter: 2019Q4

REPORT INFORMATION
  Report Type: Spontaneous
  Country: IN (occurrence: IN)
  Receive Date: 20191118
  Receipt Date: 20191118
  Transmission Date: 20200122
  Serious: Yes (Death, Other)
  Sender: FDA-Public Use
  Company Number: IN-BAUSCH-BL-2019-060265

PATIENT
  Age: 56 Year
  Sex: Female

DRUGS (1)
  1. PREDNISOLONE. [Suspect]
     Active Substance: PREDNISOLONE
     Indication: ARTHRALGIA
     Route: 048

REACTIONS (6)
  - Acinetobacter infection [Fatal]
  - Sepsis [Fatal]
  - Klebsiella infection [Fatal]
  - Mycobacterium abscessus infection [Fatal]
  - Cutaneous tuberculosis [Fatal]
  - Self-medication [Unknown]
